FAERS Safety Report 8891424 (Version 1)
Quarter: 2012Q4

REPORT INFORMATION
  Report Type: Spontaneous
  Country: US (occurrence: None)
  Receive Date: 20121105
  Receipt Date: 20121105
  Transmission Date: 20130627
  Serious: No
  Sender: FDA-Public Use
  Company Number: None

PATIENT
  Age: 36 Year
  Sex: Male
  Weight: 91.8 kg

DRUGS (1)
  1. ZALEPLON [Suspect]
     Indication: BIPOLAR AFFECTIVE DISORDER, MIXED
     Route: 048
     Dates: start: 20120817, end: 20120926

REACTIONS (2)
  - Anorgasmia [None]
  - Ejaculation failure [None]
